FAERS Safety Report 21784429 (Version 1)
Quarter: 2022Q4

REPORT INFORMATION
  Report Type: Spontaneous
  Country: BR (occurrence: BR)
  Receive Date: 20221227
  Receipt Date: 20221227
  Transmission Date: 20230113
  Serious: Yes (Other)
  Sender: FDA-Public Use
  Company Number: BR-TAKEDA-2022TUS101243

PATIENT
  Sex: Male
  Weight: 75 kg

DRUGS (2)
  1. HUMAN IMMUNOGLOBULIN G [Suspect]
     Active Substance: HUMAN IMMUNOGLOBULIN G
     Indication: Product used for unknown indication
     Dosage: UNK
     Route: 065
     Dates: start: 2012
  2. HYQVIA [Suspect]
     Active Substance: HUMAN IMMUNOGLOBULIN G\HYALURONIDASE RECOMBINANT HUMAN
     Indication: Secondary immunodeficiency
     Dosage: 45 MILLIGRAM
     Route: 058

REACTIONS (10)
  - Bedridden [Unknown]
  - Seizure [Unknown]
  - Adrenal insufficiency [Unknown]
  - Stoma site reaction [Unknown]
  - Oedema [Unknown]
  - Decreased immune responsiveness [Unknown]
  - Drug hypersensitivity [Unknown]
  - Off label use [Unknown]
  - Incorrect route of product administration [Unknown]
  - Product availability issue [Unknown]
